FAERS Safety Report 22052704 (Version 1)
Quarter: 2023Q1

REPORT INFORMATION
  Report Type: Spontaneous
  Country: US (occurrence: US)
  Receive Date: 20230302
  Receipt Date: 20230302
  Transmission Date: 20230418
  Serious: No
  Sender: FDA-Public Use
  Company Number: US-BRISTOL-MYERS SQUIBB COMPANY-2023-030511

PATIENT
  Sex: Female

DRUGS (1)
  1. ZEPOSIA [Suspect]
     Active Substance: OZANIMOD HYDROCHLORIDE
     Indication: Product used for unknown indication
     Dosage: FROM THE STARTER PACK ON DAY 5 SO MY DOSAGE INCREASED TO 0.46 TODAY

REACTIONS (4)
  - Nausea [Unknown]
  - Headache [Unknown]
  - Feeling hot [Unknown]
  - Flushing [Unknown]
